FAERS Safety Report 23343414 (Version 4)
Quarter: 2024Q2

REPORT INFORMATION
  Report Type: Spontaneous
  Country: US (occurrence: US)
  Receive Date: 20231227
  Receipt Date: 20240422
  Transmission Date: 20240716
  Serious: Yes (Life-Threatening, Hospitalization, Other)
  Sender: FDA-Public Use
  Company Number: US-PFIZER INC-PV202300207648

PATIENT
  Age: 74 Year
  Sex: Female

DRUGS (4)
  1. DEPO-MEDROL [Suspect]
     Active Substance: METHYLPREDNISOLONE ACETATE
     Dosage: 80 MG, 2ML OF 40MG/ML DEPO-MEDROL
     Route: 008
  2. LIDOCAINE HYDROCHLORIDE [Suspect]
     Active Substance: LIDOCAINE HYDROCHLORIDE
     Dosage: 2 ML
     Route: 008
  3. BACTERIOSTATIC SODIUM CHLORIDE [Suspect]
     Active Substance: SODIUM CHLORIDE
     Dosage: 2 ML
     Route: 008
  4. IOHEXOL [Suspect]
     Active Substance: IOHEXOL
     Dosage: 1 ML
     Route: 008

REACTIONS (2)
  - Meningitis aseptic [Recovered/Resolved]
  - Off label use [Unknown]
